FAERS Safety Report 6583112-6 (Version None)
Quarter: 2010Q1

REPORT INFORMATION
  Report Type: 
  Country: None (occurrence: None)
  Receive Date: 20100216
  Receipt Date: 20100203
  Transmission Date: 20100710
  Serious: Yes (Death)
  Sender: FDA-Public Use
  Company Number: BE-MERCK-1002BEL00005

PATIENT
  Age: 69 Year
  Sex: Male
  Weight: 100 kg

DRUGS (7)
  1. CANCIDAS [Suspect]
     Indication: ASPERGILLOSIS
     Route: 041
     Dates: start: 20091028, end: 20091028
  2. CANCIDAS [Suspect]
     Route: 041
     Dates: start: 20091029, end: 20091030
  3. AMPHOTERICIN B AND L-(ALPHA)-DIMYRISTOYLPHOSPHATIDYLCHOLINE AND L-(ALP [Concomitant]
     Indication: ASPERGILLOSIS
     Route: 041
     Dates: start: 20091031, end: 20091104
  4. VORICONAZOLE [Concomitant]
     Indication: PROPHYLAXIS
     Route: 048
     Dates: start: 20090919, end: 20091027
  5. VORICONAZOLE [Concomitant]
     Route: 048
     Dates: start: 20091105, end: 20091114
  6. VORICONAZOLE [Concomitant]
     Indication: ASPERGILLOSIS
     Route: 048
     Dates: start: 20090919, end: 20091027
  7. VORICONAZOLE [Concomitant]
     Route: 048
     Dates: start: 20091105, end: 20091114

REACTIONS (2)
  - ASPERGILLOSIS [None]
  - BACTERIAL INFECTION [None]
